FAERS Safety Report 15174053 (Version 1)
Quarter: 2018Q3

REPORT INFORMATION
  Report Type: Report from Study
  Country: US (occurrence: US)
  Receive Date: 20180720
  Receipt Date: 20180720
  Transmission Date: 20181010
  Serious: No
  Sender: FDA-Public Use
  Company Number: US-AMGEN-USASL2018072419

PATIENT
  Age: 75 Year
  Sex: Female

DRUGS (2)
  1. DIAZOLE [Concomitant]
     Dosage: 10MG EVERY MORNING AND 5 MG AT NIGHT
  2. REPATHA [Suspect]
     Active Substance: EVOLOCUMAB
     Indication: HYPERCHOLESTEROLAEMIA
     Dosage: 140 MG, Q2WK
     Route: 065
     Dates: start: 201604

REACTIONS (6)
  - Nausea [Unknown]
  - Vomiting [Unknown]
  - Tenderness [Recovered/Resolved]
  - Myalgia [Unknown]
  - Blood pressure increased [Recovering/Resolving]
  - Back pain [Recovering/Resolving]

NARRATIVE: CASE EVENT DATE: 20180620
